FAERS Safety Report 8501949-0 (Version None)
Quarter: 2012Q3

REPORT INFORMATION
  Report Type: 
  Country: None (occurrence: None)
  Receive Date: 20120711
  Receipt Date: 20120709
  Transmission Date: 20120928
  Serious: Yes (Hospitalization, Other)
  Sender: FDA-Public Use
  Company Number: PHEH2009US13747

PATIENT
  Sex: Female

DRUGS (13)
  1. AUGMENTIN '125' [Concomitant]
  2. NAVELBINE [Concomitant]
  3. HYDROCHLOROTHIAZIDE [Concomitant]
     Indication: HYPERTENSION
  4. TYKERB [Concomitant]
     Indication: BREAST CANCER METASTATIC
  5. CLINDAMYCIN [Concomitant]
  6. HERCEPTIN [Concomitant]
  7. NYSTATIN [Concomitant]
  8. OXYCONTIN [Concomitant]
  9. XELODA [Concomitant]
  10. PERCOCET [Concomitant]
  11. LISINOPRIL [Concomitant]
     Indication: HYPERTENSION
  12. ZOMETA [Suspect]
     Indication: METASTASES TO BONE
     Dosage: 1 DF, QMO
     Route: 042
     Dates: start: 20030101
  13. WELLBUTRIN [Concomitant]

REACTIONS (59)
  - INFLAMMATION [None]
  - HYPERTENSION [None]
  - NEOPLASM MALIGNANT [None]
  - METASTASES TO CENTRAL NERVOUS SYSTEM [None]
  - PULMONARY EMBOLISM [None]
  - DIARRHOEA HAEMORRHAGIC [None]
  - COUGH [None]
  - FATIGUE [None]
  - IMPAIRED HEALING [None]
  - METASTASES TO SPINE [None]
  - AMBLYOPIA [None]
  - VERTEBRAL FORAMINAL STENOSIS [None]
  - VULVAR DYSPLASIA [None]
  - MUSCLE SPASMS [None]
  - PELVIC PAIN [None]
  - DEHYDRATION [None]
  - CHRONIC OBSTRUCTIVE PULMONARY DISEASE [None]
  - VISION BLURRED [None]
  - CHEST PAIN [None]
  - INTERVERTEBRAL DISC PROTRUSION [None]
  - HYPERKERATOSIS [None]
  - DEPRESSION [None]
  - OSTEONECROSIS OF JAW [None]
  - ANHEDONIA [None]
  - INFECTION [None]
  - OSTEOMYELITIS [None]
  - SWELLING FACE [None]
  - ABSCESS [None]
  - DENTURE WEARER [None]
  - METASTASES TO LUNG [None]
  - PLEURAL EFFUSION [None]
  - RENAL FAILURE ACUTE [None]
  - VITREOUS FLOATERS [None]
  - HEADACHE [None]
  - BACK PAIN [None]
  - INJURY [None]
  - PAIN [None]
  - EXPOSED BONE IN JAW [None]
  - HYPOAESTHESIA [None]
  - DYSPNOEA [None]
  - SINUSITIS [None]
  - OTITIS MEDIA [None]
  - SPINAL COMPRESSION FRACTURE [None]
  - AORTIC ARTERIOSCLEROSIS [None]
  - MUSCLE STRAIN [None]
  - UTERINE LEIOMYOMA [None]
  - TOOTHACHE [None]
  - NEOPLASM PROGRESSION [None]
  - MENINGEAL NEOPLASM [None]
  - INTERSTITIAL LUNG DISEASE [None]
  - SPONDYLITIS [None]
  - COLLAGEN-VASCULAR DISEASE [None]
  - NASAL CONGESTION [None]
  - MENTAL STATUS CHANGES [None]
  - ANXIETY [None]
  - STOMATITIS [None]
  - SPINAL OSTEOARTHRITIS [None]
  - ATELECTASIS [None]
  - HERPES ZOSTER [None]
